FAERS Safety Report 16624880 (Version 1)
Quarter: 2019Q3

REPORT INFORMATION
  Report Type: Spontaneous
  Country: US (occurrence: US)
  Receive Date: 20190611
  Receipt Date: 20190611
  Transmission Date: 20191004
  Serious: Yes (Hospitalization)
  Sender: FDA-Public Use
  Company Number: None

PATIENT
  Age: 64 Year
  Sex: Male
  Weight: 87.6 kg

DRUGS (17)
  1. FLONASE [Concomitant]
     Active Substance: FLUTICASONE PROPIONATE
  2. JANUVIA [Concomitant]
     Active Substance: SITAGLIPTIN PHOSPHATE
  3. CENTRUM SILVER [Concomitant]
     Active Substance: MINERALS\VITAMINS
  4. CLONIDINE. [Concomitant]
     Active Substance: CLONIDINE
  5. VOLTARN GEL [Concomitant]
  6. HCTZ [Concomitant]
     Active Substance: HYDROCHLOROTHIAZIDE
  7. NORCO [Concomitant]
     Active Substance: ACETAMINOPHEN\HYDROCODONE BITARTRATE
  8. CARDIZEM [Concomitant]
     Active Substance: DILTIAZEM HYDROCHLORIDE
  9. CLARITIN [Concomitant]
     Active Substance: LORATADINE
  10. MYCOSTATIN [Concomitant]
     Active Substance: NYSTATIN
  11. CYCLOBENZAPRINE. [Concomitant]
     Active Substance: CYCLOBENZAPRINE
  12. MAVYRET [Suspect]
     Active Substance: GLECAPREVIR\PIBRENTASVIR
     Indication: HEPATITIS C
     Route: 048
     Dates: start: 20181018, end: 20190110
  13. ANUSOL-HC [Concomitant]
  14. ASPIRIN. [Concomitant]
     Active Substance: ASPIRIN
  15. FERROUS SULFATE. [Concomitant]
     Active Substance: FERROUS SULFATE
  16. NIZORAL [Concomitant]
     Active Substance: KETOCONAZOLE
  17. FLOMAX [Concomitant]
     Active Substance: TAMSULOSIN HYDROCHLORIDE

REACTIONS (9)
  - Haematochezia [None]
  - Gastrointestinal haemorrhage [None]
  - Diverticulum intestinal [None]
  - Hiatus hernia [None]
  - Intestinal ulcer [None]
  - Large intestine polyp [None]
  - Colon adenoma [None]
  - Blood loss anaemia [None]
  - Haemorrhoids [None]

NARRATIVE: CASE EVENT DATE: 20181122
